FAERS Safety Report 7882145-7 (Version None)
Quarter: 2011Q4

REPORT INFORMATION
  Report Type: 
  Country: None (occurrence: None)
  Receive Date: 20111101
  Receipt Date: 20110609
  Transmission Date: 20120403
  Serious: No
  Sender: FDA-Public Use
  Company Number: US-AMGEN-USASP2011029876

PATIENT
  Age: 51 Year
  Sex: Female

DRUGS (1)
  1. ENBREL [Suspect]
     Indication: RHEUMATOID ARTHRITIS
     Dosage: 25 MG, QWK
     Dates: start: 20000223

REACTIONS (9)
  - MIGRAINE [None]
  - MOBILITY DECREASED [None]
  - SKIN DISORDER [None]
  - INFECTED BITES [None]
  - SKIN FISSURES [None]
  - RHEUMATOID ARTHRITIS [None]
  - HERPES ZOSTER [None]
  - LOCALISED INFECTION [None]
  - VIRAL INFECTION [None]
